FAERS Safety Report 9005572 (Version 1)
Quarter: 2013Q1

REPORT INFORMATION
  Report Type: Spontaneous
  Country: US (occurrence: US)
  Receive Date: 20130109
  Receipt Date: 20130109
  Transmission Date: 20140127
  Serious: Yes (Hospitalization)
  Sender: FDA-Public Use
  Company Number: US-PFIZER INC-2013003805

PATIENT
  Age: 6 Year
  Sex: Male

DRUGS (3)
  1. REVATIO [Suspect]
     Dosage: UNK
  2. LETAIRIS [Suspect]
     Indication: COR PULMONALE CHRONIC
     Dosage: 5 MG, 2X/DAY
     Route: 048
     Dates: start: 20120717
  3. ADCIRCA [Suspect]
     Dosage: UNK

REACTIONS (2)
  - Swollen tongue [Unknown]
  - Off label use [Unknown]
